FAERS Safety Report 9654744 (Version 2)
Quarter: 2013Q4

REPORT INFORMATION
  Report Type: Spontaneous
  Country: US (occurrence: US)
  Receive Date: 20131029
  Receipt Date: 20131029
  Transmission Date: 20140711
  Serious: No
  Sender: FDA-Public Use
  Company Number: US-PURDUE-USA-2012-0086736

PATIENT
  Age: 56 Year
  Sex: Male
  Weight: 101.1 kg

DRUGS (3)
  1. OXYCODONE HCL CR TABLETS (SIMILAR TO NDA 20-553) [Suspect]
     Indication: BACK PAIN
     Dosage: 15 MG, TID
     Route: 048
     Dates: end: 201204
  2. FENTANYL [Suspect]
     Indication: BACK PAIN
     Dosage: 75 MCG, Q72H
     Route: 062
     Dates: start: 201204
  3. CORTISONE [Concomitant]
     Indication: BACK PAIN
     Dosage: UNK

REACTIONS (1)
  - Drug ineffective [Unknown]
